FAERS Safety Report 12871802 (Version 1)
Quarter: 2016Q4

REPORT INFORMATION
  Report Type: Spontaneous
  Country: US (occurrence: US)
  Receive Date: 20161020
  Receipt Date: 20161020
  Transmission Date: 20170207
  Serious: Yes (Hospitalization)
  Sender: FDA-Public Use
  Company Number: None

PATIENT
  Age: 39 Year
  Sex: Female
  Weight: 69.01 kg

DRUGS (1)
  1. INFLIXIMAB [Suspect]
     Active Substance: INFLIXIMAB
     Indication: RHEUMATOID ARTHRITIS
     Dosage: 400MG Q 4 WEEKS IV VIA RATE CONTROLLED DEVICE
     Route: 042
     Dates: start: 20160531, end: 20160923

REACTIONS (6)
  - Feeling cold [None]
  - Tremor [None]
  - Tachypnoea [None]
  - Malaise [None]
  - Chills [None]
  - Hypertension [None]

NARRATIVE: CASE EVENT DATE: 20160923
